FAERS Safety Report 11278511 (Version 3)
Quarter: 2015Q4

REPORT INFORMATION
  Report Type: Spontaneous
  Country: JP (occurrence: JP)
  Receive Date: 20150717
  Receipt Date: 20151030
  Transmission Date: 20160304
  Serious: Yes (Hospitalization, Other)
  Sender: FDA-Public Use
  Company Number: JP-AMGEN-JPNSP2015071274

PATIENT
  Age: 71 Year
  Sex: Female
  Weight: 56 kg

DRUGS (13)
  1. CYCLOPHOSPHAMIDE. [Suspect]
     Active Substance: CYCLOPHOSPHAMIDE
     Dosage: 980 MG, UNK
     Route: 041
     Dates: start: 20150623, end: 20150623
  2. G-LASTA [Suspect]
     Active Substance: PEGFILGRASTIM
     Indication: COLONY STIMULATING FACTOR PROPHYLAXIS
     Dosage: 3.6 MG, SINGLE
     Route: 058
     Dates: start: 20150603, end: 20150603
  3. GRAN [Suspect]
     Active Substance: FILGRASTIM
     Indication: PRODUCT USED FOR UNKNOWN INDICATION
     Dosage: 75 MUG, SINGLE
     Route: 065
     Dates: start: 20150610, end: 20150610
  4. GRAN [Suspect]
     Active Substance: FILGRASTIM
     Dosage: 75 MUG, SINGLE
     Route: 065
     Dates: start: 20150630, end: 20150630
  5. GRAN [Suspect]
     Active Substance: FILGRASTIM
     Dosage: 75 MUG, QD
     Route: 065
     Dates: start: 20150703, end: 20150705
  6. CYCLOPHOSPHAMIDE. [Suspect]
     Active Substance: CYCLOPHOSPHAMIDE
     Indication: BREAST CANCER
     Dosage: 810 MG, UNK
     Route: 041
     Dates: start: 20150512, end: 20150512
  7. FLUOROURACIL. [Concomitant]
     Active Substance: FLUOROURACIL
     Indication: BREAST CANCER
     Dosage: UNK
     Route: 041
     Dates: start: 20150512, end: 20150512
  8. G-LASTA [Suspect]
     Active Substance: PEGFILGRASTIM
     Dosage: 3.6 MG, SINGLE
     Route: 058
     Dates: start: 20150626, end: 20150626
  9. EPIRUBICIN HYDROCHLORIDE. [Suspect]
     Active Substance: EPIRUBICIN HYDROCHLORIDE
     Indication: BREAST CANCER
     Dosage: 160 MG, UNK
     Route: 065
     Dates: start: 20150512, end: 20150512
  10. CYCLOPHOSPHAMIDE. [Suspect]
     Active Substance: CYCLOPHOSPHAMIDE
     Dosage: 820 MG, UNK
     Route: 041
     Dates: start: 20150602, end: 20150602
  11. FLUOROURACIL. [Concomitant]
     Active Substance: FLUOROURACIL
     Dosage: UNK
     Route: 041
     Dates: start: 20150602, end: 20150602
  12. EPIRUBICIN HYDROCHLORIDE. [Suspect]
     Active Substance: EPIRUBICIN HYDROCHLORIDE
     Dosage: 146 MG, UNK
     Route: 065
     Dates: start: 20150623, end: 20150623
  13. EPIRUBICIN HYDROCHLORIDE. [Suspect]
     Active Substance: EPIRUBICIN HYDROCHLORIDE
     Dosage: 160 MG, UNK
     Route: 065
     Dates: start: 20150602, end: 20150602

REACTIONS (9)
  - Pyrexia [Recovered/Resolved]
  - Pyrexia [Recovering/Resolving]
  - Platelet count decreased [Recovering/Resolving]
  - Neutrophil count decreased [Recovering/Resolving]
  - Colony stimulating factor therapy [Unknown]
  - Platelet count decreased [Recovered/Resolved]
  - White blood cell count decreased [Recovered/Resolved]
  - Neutrophil count decreased [Recovered/Resolved]
  - White blood cell count decreased [Recovering/Resolving]

NARRATIVE: CASE EVENT DATE: 20150519
